FAERS Safety Report 19920721 (Version 2)
Quarter: 2021Q4

REPORT INFORMATION
  Report Type: Report from Study
  Country: TR (occurrence: TR)
  Receive Date: 20211006
  Receipt Date: 20211103
  Transmission Date: 20220303
  Serious: Yes (Other)
  Sender: FDA-Public Use
  Company Number: TR-ABBVIE-21K-161-4105658-00

PATIENT
  Sex: Female
  Weight: 76 kg

DRUGS (10)
  1. CARBIDOPA\LEVODOPA [Suspect]
     Active Substance: CARBIDOPA\LEVODOPA
     Indication: Parkinson^s disease
     Dosage: MORNING DOSE (ML): 00.00 CONTINUOUS DOSE (ML): 4.30 EXTRA DOSE (ML): 1.50
     Route: 050
     Dates: start: 20210929, end: 20211009
  2. CARBIDOPA\LEVODOPA [Suspect]
     Active Substance: CARBIDOPA\LEVODOPA
     Dosage: MORNING DOSE (ML): 00.00 CONTINUOUS DOSE (ML): 4.60 EXTRA DOSE (ML): 1.50
     Route: 050
     Dates: start: 20211009, end: 20211013
  3. CARBIDOPA\LEVODOPA [Suspect]
     Active Substance: CARBIDOPA\LEVODOPA
     Dosage: MORNING DOSE (ML): 00.00 CONTINUOUS DOSE (ML): 4.80 EXTRA DOSE (ML): 1.50
     Route: 050
     Dates: start: 20211013, end: 20211101
  4. CARBIDOPA\LEVODOPA [Suspect]
     Active Substance: CARBIDOPA\LEVODOPA
     Dosage: MORNING DOSE (ML): 00.00 CONTINUOUS DOSE (ML): 5.10 EXTRA DOSE (ML): 1.50
     Route: 050
     Dates: start: 20211101
  5. BENSERAZIDE HYDROCHLORIDE\LEVODOPA [Concomitant]
     Active Substance: BENSERAZIDE HYDROCHLORIDE\LEVODOPA
     Indication: Parkinson^s disease
     Route: 048
     Dates: start: 2011
  6. EUTHYROX [Concomitant]
     Active Substance: LEVOTHYROXINE SODIUM
     Indication: Thyroid disorder
     Route: 048
     Dates: start: 2020
  7. ELIQUIS [Concomitant]
     Active Substance: APIXABAN
     Indication: Anticoagulant therapy
     Route: 048
     Dates: start: 2019
  8. NEBIVOLOL [Concomitant]
     Active Substance: NEBIVOLOL
     Indication: Hypertension
     Route: 048
     Dates: start: 2016
  9. SARS-COV-2 VACCINE [Concomitant]
     Indication: COVID-19 immunisation
     Dosage: FIRST DOSE WAS ADMINISTERED
     Route: 030
  10. SARS-COV-2 VACCINE [Concomitant]
     Dosage: SECOND DOSE WAS ADMINISTERED
     Route: 030

REACTIONS (2)
  - Urinary tract infection [Recovered/Resolved]
  - C-reactive protein increased [Recovered/Resolved]

NARRATIVE: CASE EVENT DATE: 20210101
